FAERS Safety Report 9500906 (Version 1)
Quarter: 2013Q3

REPORT INFORMATION
  Report Type: Spontaneous
  Country: US (occurrence: US)
  Receive Date: 20130905
  Receipt Date: 20130905
  Transmission Date: 20140515
  Serious: Yes (Other)
  Sender: FDA-Public Use
  Company Number: US-INCYTE CORPORATION-2013IN001966

PATIENT
  Age: 76 Year
  Sex: Female

DRUGS (2)
  1. JAKAFI [Suspect]
     Indication: MYELOFIBROSIS
     Dosage: 20 MG DAILY, EXCEPT EVERY FOURTH DAY, WHEN 20 MG BID IS TAKEN
     Route: 048
     Dates: start: 201208
  2. HYDROCODONE-APAP [Concomitant]

REACTIONS (1)
  - Multiple fractures [Unknown]
